FAERS Safety Report 19401035 (Version 1)
Quarter: 2021Q2

REPORT INFORMATION
  Report Type: Spontaneous
  Country: ES (occurrence: ES)
  Receive Date: 20210610
  Receipt Date: 20210610
  Transmission Date: 20210717
  Serious: Yes (Hospitalization, Other)
  Sender: FDA-Public Use
  Company Number: ES-TEVA-2021-ES-1919459

PATIENT
  Age: 55 Year
  Sex: Female
  Weight: 73 kg

DRUGS (5)
  1. OPENVAS 10 MG COMPRIMIDOS RECUBIERTOS , 28 COMPRIMIDOS [Concomitant]
     Active Substance: OLMESARTAN MEDOXOMIL
  2. LORAZEPAM 1 MG 50 COMPRIMIDOS [Concomitant]
     Active Substance: LORAZEPAM
  3. ACIDO ACETILSALICILICO 100 MG 30 COMPRIMIDOS [Concomitant]
  4. IMATINIB 400 MG 30 COMPRIMIDOS [Suspect]
     Active Substance: IMATINIB
     Indication: CHRONIC MYELOID LEUKAEMIA
     Dosage: 400 MG
     Route: 048
     Dates: start: 20131203
  5. LIPLAT 40 MG COMPRIMIDOS , 28 COMPRIMIDOS [Concomitant]

REACTIONS (1)
  - Transient ischaemic attack [Recovering/Resolving]

NARRATIVE: CASE EVENT DATE: 20210513
